FAERS Safety Report 9772870 (Version 1)
Quarter: 2013Q4

REPORT INFORMATION
  Report Type: Spontaneous
  Country: NO (occurrence: NO)
  Receive Date: 20131219
  Receipt Date: 20131219
  Transmission Date: 20140711
  Serious: Yes (Death)
  Sender: FDA-Public Use
  Company Number: PHHY2013NO146870

PATIENT
  Age: 18 Year
  Sex: Female

DRUGS (5)
  1. DOXORUBICIN [Suspect]
     Indication: CHEMOTHERAPY
     Dosage: 340 MG/M2, UNK
  2. VINCRISTINE [Suspect]
     Indication: CHEMOTHERAPY
     Dosage: 6 MG/M2, UNK
  3. ETOPOSIDE [Suspect]
     Indication: CHEMOTHERAPY
     Dosage: 1500 MG/M2, UNK
  4. IFOSFAMIDE [Suspect]
     Indication: CHEMOTHERAPY
     Dosage: 27000 MG/M2, UNK
  5. CYCLOPHOSPHAMIDE [Suspect]
     Indication: CHEMOTHERAPY
     Dosage: 10400 MG/M2, UNK

REACTIONS (5)
  - Acute respiratory distress syndrome [Fatal]
  - Pneumonia [Fatal]
  - Pleural effusion [Fatal]
  - Pulmonary toxicity [Fatal]
  - Therapeutic response decreased [Unknown]
